FAERS Safety Report 14217649 (Version 1)
Quarter: 2017Q4

REPORT INFORMATION
  Report Type: Spontaneous
  Country: US (occurrence: US)
  Receive Date: 20171123
  Receipt Date: 20171123
  Transmission Date: 20180321
  Serious: No
  Sender: FDA-Public Use
  Company Number: US-PFIZER INC-2017503521

PATIENT
  Age: 7 Year
  Sex: Female

DRUGS (1)
  1. GENOTROPIN [Suspect]
     Active Substance: SOMATROPIN
     Dosage: 0.5 MG, UNK
     Dates: start: 201401

REACTIONS (5)
  - Palpitations [Unknown]
  - Headache [Unknown]
  - Constipation [Unknown]
  - Dizziness [Unknown]
  - Abdominal pain [Unknown]
